FAERS Safety Report 7957804-8 (Version None)
Quarter: 2011Q4

REPORT INFORMATION
  Report Type: 
  Country: None (occurrence: None)
  Receive Date: 20111205
  Receipt Date: 20111130
  Transmission Date: 20120403
  Serious: Yes (Life-Threatening, Hospitalization, Disabling, Other)
  Sender: FDA-Public Use
  Company Number: FR-ABBOTT-08P-056-0468813-00

PATIENT
  Sex: Male

DRUGS (11)
  1. MARAVIROC [Concomitant]
     Indication: PRODUCT USED FOR UNKNOWN INDICATION
     Dates: start: 20090115
  2. ENFUVIRTIDE [Concomitant]
     Indication: PRODUCT USED FOR UNKNOWN INDICATION
     Dates: start: 20090115
  3. MAGNESIUM HYDROXIDE TAB [Concomitant]
     Indication: PRODUCT USED FOR UNKNOWN INDICATION
  4. ASPIRIN [Concomitant]
     Indication: PRODUCT USED FOR UNKNOWN INDICATION
  5. PPI [Concomitant]
     Indication: PRODUCT USED FOR UNKNOWN INDICATION
  6. GAVISCON [Concomitant]
     Indication: PRODUCT USED FOR UNKNOWN INDICATION
  7. TRUVADA [Suspect]
     Indication: HIV INFECTION
     Dosage: 200MG/245MG (UNIT DOSE)
     Route: 048
     Dates: start: 20080205, end: 20080228
  8. KALETRA [Suspect]
     Indication: HIV INFECTION
     Dosage: 200/50MG (UNIT DOSE)
     Route: 048
     Dates: start: 20080205, end: 20080228
  9. RALTEGRAVIR [Concomitant]
     Indication: PRODUCT USED FOR UNKNOWN INDICATION
     Dates: start: 20090115
  10. ACETAMINOPHEN [Concomitant]
     Indication: PRODUCT USED FOR UNKNOWN INDICATION
  11. PRIMPERAN TAB [Concomitant]
     Indication: PRODUCT USED FOR UNKNOWN INDICATION

REACTIONS (24)
  - TOXIC EPIDERMAL NECROLYSIS [None]
  - DRY EYE [None]
  - EYE PAIN [None]
  - STEVENS-JOHNSON SYNDROME [None]
  - EYE INFECTION [None]
  - QUALITY OF LIFE DECREASED [None]
  - ODYNOPHAGIA [None]
  - ORAL MUCOSA EROSION [None]
  - BRONCHIAL DISORDER [None]
  - ABDOMINAL PAIN UPPER [None]
  - CORNEAL DISORDER [None]
  - CONFUSIONAL STATE [None]
  - HYPOXIA [None]
  - DYSURIA [None]
  - CARDIOGENIC SHOCK [None]
  - ANXIETY [None]
  - LUNG DISORDER [None]
  - COMA [None]
  - RENAL DISORDER [None]
  - PHARYNGEAL EROSION [None]
  - OVERDOSE [None]
  - DREAMY STATE [None]
  - NOSOCOMIAL INFECTION [None]
  - BLOOD CREATINE PHOSPHOKINASE INCREASED [None]
